FAERS Safety Report 8966487 (Version 2)
Quarter: 2013Q1

REPORT INFORMATION
  Report Type: Spontaneous
  Country: GB (occurrence: None)
  Receive Date: 20121206
  Receipt Date: 20121211
  Transmission Date: 20140127
  Serious: Yes (Other)
  Sender: FDA-Public Use
  Company Number: AUR-APL-2012-05138

PATIENT
  Age: 35 Year
  Sex: Female
  Weight: 78 kg

DRUGS (7)
  1. MIRTAZAPINE (MIRTAZAPINE) [Suspect]
     Indication: ANXIETY
     Route: 048
     Dates: start: 20120921, end: 20121021
  2. MIRTAZAPINE (MIRTAZAPINE) [Suspect]
     Indication: DEPRESSION
     Route: 048
     Dates: start: 20120921, end: 20121021
  3. SERTRALINE (SERTRALINE) (SERTRALINE) [Suspect]
     Indication: ANXIETY
     Dosage: 50-150MG,ORAL
     Route: 048
     Dates: start: 20120828, end: 20121014
  4. SERTRALINE (SERTRALINE) (SERTRALINE) [Suspect]
     Indication: DEPRESSION
     Dosage: 50-150MG,ORAL
     Route: 048
     Dates: start: 20120828, end: 20121014
  5. ECHINACEA (ECHINACEA PURPUREA) [Concomitant]
  6. MILK THISTLE SEED (SILYBUM MARIANUM) [Concomitant]
  7. SPIRIRULINA (SPIRULINA SPP.) [Concomitant]

REACTIONS (3)
  - Drug-induced liver injury [None]
  - Liver disorder [None]
  - Inflammation [None]
